FAERS Safety Report 6751602-9 (Version None)
Quarter: 2010Q2

REPORT INFORMATION
  Report Type: 
  Country: None (occurrence: None)
  Receive Date: 20100526
  Receipt Date: 20100514
  Transmission Date: 20101027
  Serious: Yes (Hospitalization, Other)
  Sender: FDA-Public Use
  Company Number: 2010AP000946

PATIENT
  Age: 34 Year
  Sex: Male

DRUGS (5)
  1. CARBAMAZEPINE [Suspect]
     Indication: COMPLEX PARTIAL SEIZURES
     Dosage: 1600 MG;QD
  2. ACETAMINOPHEN [Suspect]
     Indication: BACK PAIN
     Dosage: 2000 MG;QD, 2500 MG
  3. CLOBAZAM (CLOBAZAM) [Concomitant]
  4. METHOCARBAMOL [Concomitant]
  5. MESALAMINE [Concomitant]

REACTIONS (13)
  - ABDOMINAL PAIN [None]
  - ACUTE HEPATIC FAILURE [None]
  - ANTICONVULSANT DRUG LEVEL ABOVE THERAPEUTIC [None]
  - BALANCE DISORDER [None]
  - CEREBELLAR SYNDROME [None]
  - DIPLOPIA [None]
  - DRUG INTERACTION [None]
  - DRUG TOXICITY [None]
  - GAIT DISTURBANCE [None]
  - NYSTAGMUS [None]
  - RENAL FAILURE ACUTE [None]
  - TREMOR [None]
  - TUBULOINTERSTITIAL NEPHRITIS [None]
